FAERS Safety Report 4474940-1 (Version None)
Quarter: 2004Q4

REPORT INFORMATION
  Report Type: 
  Country: None (occurrence: None)
  Receive Date: 20041014
  Receipt Date: 20041008
  Transmission Date: 20050328
  Serious: Yes (Life-Threatening, Hospitalization, Disabling)
  Sender: FDA-Public Use
  Company Number: US-MERCK-0410USA01372

PATIENT
  Age: 88 Year
  Sex: Male

DRUGS (3)
  1. LABETALOL HYDROCHLORIDE [Concomitant]
     Route: 065
  2. VIOXX [Suspect]
     Indication: ARTHRITIS
     Route: 048
     Dates: start: 20020101, end: 20041001
  3. VIOXX [Suspect]
     Indication: HEADACHE
     Route: 048
     Dates: start: 20020101, end: 20041001

REACTIONS (5)
  - CEREBROVASCULAR ACCIDENT [None]
  - HEMIPLEGIA [None]
  - HYPERTENSION [None]
  - PROSTATIC DISORDER [None]
  - TRANSURETHRAL PROSTATECTOMY [None]
